FAERS Safety Report 10270779 (Version 1)
Quarter: 2014Q2

REPORT INFORMATION
  Report Type: Spontaneous
  Country: GB (occurrence: None)
  Receive Date: 20140627
  Receipt Date: 20140627
  Transmission Date: 20141212
  Serious: Yes (Other)
  Sender: FDA-Public Use
  Company Number: DEP_02158_2014

PATIENT
  Sex: 0

DRUGS (3)
  1. PECFENT [Suspect]
     Indication: PRODUCT USED FOR UNKNOWN INDICATION
     Dosage: 1 BOTTLE
  2. DOCUSATE (DOCUSATE) [Suspect]
     Indication: PRODUCT USED FOR UNKNOWN INDICATION
     Dosage: DF
  3. OMEPRAZOLE (OMEPRAZOLE) [Suspect]
     Indication: PRODUCT USED FOR UNKNOWN INDICATION
     Dosage: DF

REACTIONS (1)
  - Pollakiuria [None]
